FAERS Safety Report 20829885 (Version 1)
Quarter: 2022Q2

REPORT INFORMATION
  Report Type: Spontaneous
  Country: US (occurrence: US)
  Receive Date: 20220513
  Receipt Date: 20220513
  Transmission Date: 20220721
  Serious: Yes (Hospitalization)
  Sender: FDA-Public Use
  Company Number: US-GW PHARMA-2022-US-015769

PATIENT
  Sex: Female
  Weight: 28.571 kg

DRUGS (1)
  1. EPIDIOLEX [Suspect]
     Active Substance: CANNABIDIOL
     Indication: Partial seizures
     Dosage: 3 MILLILITER, BID
     Route: 048
     Dates: start: 202102

REACTIONS (2)
  - Hospitalisation [Unknown]
  - Off label use [Unknown]
